FAERS Safety Report 20814777 (Version 1)
Quarter: 2022Q2

REPORT INFORMATION
  Report Type: Spontaneous
  Country: FR (occurrence: FR)
  Receive Date: 20220511
  Receipt Date: 20220511
  Transmission Date: 20220721
  Serious: Yes (Hospitalization)
  Sender: FDA-Public Use
  Company Number: None

PATIENT
  Age: 60 Year
  Sex: Female

DRUGS (1)
  1. ANAGRELIDE HYDROCHLORIDE [Suspect]
     Active Substance: ANAGRELIDE HYDROCHLORIDE
     Indication: Myeloproliferative neoplasm
     Dosage: 3 MILLIGRAM
     Route: 048
     Dates: start: 20210902, end: 20220401

REACTIONS (3)
  - General physical health deterioration [Recovering/Resolving]
  - Cough [Recovering/Resolving]
  - Pulmonary hypertension [Recovering/Resolving]

NARRATIVE: CASE EVENT DATE: 20220301
